FAERS Safety Report 20224694 (Version 2)
Quarter: 2022Q1

REPORT INFORMATION
  Report Type: Spontaneous
  Country: JP (occurrence: JP)
  Receive Date: 20211223
  Receipt Date: 20220107
  Transmission Date: 20220423
  Serious: Yes (Life-Threatening, Other)
  Sender: FDA-Public Use
  Company Number: JP-TEVA-2021-JP-1989511

PATIENT
  Age: 24 Year
  Sex: Male

DRUGS (8)
  1. PREDNISOLONE [Suspect]
     Active Substance: PREDNISOLONE
     Indication: Eosinophilic pneumonia chronic
     Dosage: 25 MILLIGRAM DAILY;
     Route: 065
     Dates: start: 2006
  2. PREDNISOLONE [Suspect]
     Active Substance: PREDNISOLONE
     Indication: Asthma
     Dosage: TAPERED (DOSE UNSPECIFIED)
     Route: 065
     Dates: end: 201508
  3. PREDNISOLONE [Suspect]
     Active Substance: PREDNISOLONE
     Route: 065
     Dates: start: 2016
  4. PREDNISOLONE [Suspect]
     Active Substance: PREDNISOLONE
     Route: 065
  5. SUPLATAST TOSILATE [Suspect]
     Active Substance: SUPLATAST TOSILATE
     Indication: Eosinophilic pneumonia chronic
     Dosage: 300 MILLIGRAM DAILY;
     Route: 065
     Dates: start: 2016
  6. Fluticasone furan carboxylate/vilanterol trifenatate [Concomitant]
     Indication: Asthma
     Route: 055
     Dates: start: 2016
  7. Montelukast-sodium [Concomitant]
     Indication: Asthma
     Dosage: 10 MILLIGRAM DAILY;
     Route: 065
     Dates: start: 2016
  8. MEPOLIZUMAB [Concomitant]
     Active Substance: MEPOLIZUMAB
     Indication: Eosinophilic pneumonia chronic
     Route: 058

REACTIONS (1)
  - Drug ineffective [Unknown]
